FAERS Safety Report 5176494-3 (Version None)
Quarter: 2006Q4

REPORT INFORMATION
  Report Type: 
  Country: None (occurrence: None)
  Receive Date: 20061207
  Receipt Date: 20061128
  Transmission Date: 20070319
  Serious: Yes (Other)
  Sender: FDA-Public Use
  Company Number: 230754K06CAN

PATIENT
  Sex: Female

DRUGS (3)
  1. REBIF [Suspect]
     Indication: RELAPSING-REMITTING MULTIPLE SCLEROSIS
     Dosage: 44 MCG, 3 IN 1 WEEKS
     Dates: start: 20051003
  2. ALL OTHER THERAPEUTIC PRODUCTS [Concomitant]
  3. ORAL CONTRACEPTIVE NOS [Concomitant]

REACTIONS (1)
  - OVARIAN CYST [None]
